FAERS Safety Report 5573363-1 (Version None)
Quarter: 2007Q4

REPORT INFORMATION
  Report Type: 
  Country: None (occurrence: None)
  Receive Date: 20071226
  Receipt Date: 20071217
  Transmission Date: 20080405
  Serious: Yes (Hospitalization, Other)
  Sender: FDA-Public Use
  Company Number: US-JNJFOC-20071007059

PATIENT
  Sex: Female
  Weight: 97.98 kg

DRUGS (3)
  1. REMICADE [Suspect]
     Indication: PSORIATIC ARTHROPATHY
     Route: 042
  2. REMICADE [Suspect]
     Indication: RHEUMATOID ARTHRITIS
     Route: 042
  3. ZETIA [Concomitant]

REACTIONS (4)
  - GALLBLADDER DISORDER [None]
  - HEPATIC ENZYME INCREASED [None]
  - INFUSION RELATED REACTION [None]
  - VISION BLURRED [None]
